FAERS Safety Report 22109352 (Version 8)
Quarter: 2023Q2

REPORT INFORMATION
  Report Type: Report from Study
  Country: CL (occurrence: None)
  Receive Date: 20230317
  Receipt Date: 20230525
  Transmission Date: 20230721
  Serious: Yes (Hospitalization)
  Sender: FDA-Public Use
  Company Number: CL-Eisai Medical Research-EC-2023-136307

PATIENT
  Age: 58 Year
  Sex: Male
  Weight: 74 kg

DRUGS (19)
  1. LENVATINIB [Suspect]
     Active Substance: LENVATINIB
     Indication: Hepatocellular carcinoma
     Dosage: STARTING DOSE AT 12 MILLIGRAM, FLUCTUATED DOSAGE
     Route: 048
     Dates: start: 20220324, end: 20230308
  2. VIBOSTOLIMAB [Suspect]
     Active Substance: VIBOSTOLIMAB
     Indication: Hepatocellular carcinoma
     Dosage: VIBOSTOLIMAB 200 MG + PEMBROLIZUMAB 200 MG
     Route: 042
     Dates: start: 20220324, end: 20230126
  3. VALSARTAN [Concomitant]
     Active Substance: VALSARTAN
     Dates: start: 201401
  4. INSULIN HUMAN [Concomitant]
     Active Substance: INSULIN HUMAN
     Dates: start: 201401
  5. PROPRANOLOL [Concomitant]
     Active Substance: PROPRANOLOL HYDROCHLORIDE
     Dates: start: 201401
  6. SPIRONOLACTONE [Concomitant]
     Active Substance: SPIRONOLACTONE
     Dates: start: 201901
  7. ATORVASTATIN [Concomitant]
     Active Substance: ATORVASTATIN
     Dates: start: 201401
  8. UREA [Concomitant]
     Active Substance: UREA
     Dates: start: 20220413
  9. INSULIN HUMAN [Concomitant]
     Active Substance: INSULIN HUMAN
     Route: 058
     Dates: start: 20140101
  10. PREDNISONE [Concomitant]
     Active Substance: PREDNISONE
     Dates: start: 20220613
  11. ACETAMINOPHEN [Concomitant]
     Active Substance: ACETAMINOPHEN
     Dates: start: 20220321
  12. FEXOFENADINE HYDROCHLORIDE [Concomitant]
     Active Substance: FEXOFENADINE HYDROCHLORIDE
     Dates: start: 20220725
  13. MOMETASONE FUROATE [Concomitant]
     Active Substance: MOMETASONE FUROATE
     Dates: start: 20220926
  14. TERBINAFINE HYDROCHLORIDE [Concomitant]
     Active Substance: TERBINAFINE HYDROCHLORIDE
     Dates: start: 20221214
  15. CORTISONE [Concomitant]
     Active Substance: CORTISONE
     Dates: start: 20221214
  16. AMLODIPINE [Concomitant]
     Active Substance: AMLODIPINE BESYLATE
     Dates: start: 20220725
  17. TERBINAFINE [Concomitant]
     Active Substance: TERBINAFINE
     Dates: start: 20221214
  18. HYDROCORTISONE [Concomitant]
     Active Substance: HYDROCORTISONE
     Dates: start: 20221214
  19. PEMBROLIZUMAB [Suspect]
     Active Substance: PEMBROLIZUMAB

REACTIONS (1)
  - Haemoperitoneum [Recovered/Resolved]

NARRATIVE: CASE EVENT DATE: 20230309
